FAERS Safety Report 6428469-1 (Version None)
Quarter: 2009Q4

REPORT INFORMATION
  Report Type: 
  Country: None (occurrence: None)
  Receive Date: 20091105
  Receipt Date: 20091028
  Transmission Date: 20100525
  Serious: Yes (Other)
  Sender: FDA-Public Use
  Company Number: B0600977A

PATIENT
  Sex: Male

DRUGS (4)
  1. LAMICTAL [Suspect]
     Indication: EPILEPSY
     Dosage: 25MG TWICE PER DAY
     Route: 048
  2. SELENICA-R [Concomitant]
     Indication: EPILEPSY
     Dosage: 200MG TWICE PER DAY
     Route: 048
  3. UNKNOWN DRUG [Concomitant]
     Indication: EPILEPSY
     Dosage: 50MG TWICE PER DAY
     Route: 048
  4. DEPAKENE [Concomitant]
     Indication: EPILEPSY
     Dosage: 100MG PER DAY
     Route: 048

REACTIONS (1)
  - POST PROCEDURAL HAEMORRHAGE [None]
